FAERS Safety Report 21634039 (Version 1)
Quarter: 2022Q4

REPORT INFORMATION
  Report Type: Spontaneous
  Country: US (occurrence: None)
  Receive Date: 20221123
  Receipt Date: 20221123
  Transmission Date: 20230113
  Serious: Yes (Hospitalization)
  Sender: FDA-Public Use
  Company Number: None

PATIENT
  Age: 32 Year
  Sex: Male
  Weight: 59.4 kg

DRUGS (8)
  1. MONTELUKAST [Suspect]
     Active Substance: MONTELUKAST SODIUM
     Indication: Asthma
     Dosage: OTHER QUANTITY : 1 TABLET(S);?FREQUENCY : DAILY;?
     Route: 048
  2. VITAMIN B12 [Concomitant]
     Active Substance: CYANOCOBALAMIN
  3. FISH OIL [Concomitant]
     Active Substance: FISH OIL
  4. OMEGA 3 [Concomitant]
     Active Substance: CAPSAICIN
  5. COENZYME Q10 [Concomitant]
     Active Substance: DIETARY SUPPLEMENT\UBIDECARENONE
  6. PROBIOTICS NOS [Concomitant]
     Active Substance: PROBIOTICS NOS
  7. tyme [Concomitant]
  8. OREGANO [Concomitant]
     Active Substance: OREGANO

REACTIONS (12)
  - Gastric disorder [None]
  - Obsessive-compulsive disorder [None]
  - Tremor [None]
  - Restlessness [None]
  - Abdominal pain upper [None]
  - Abdominal discomfort [None]
  - Arthralgia [None]
  - Myalgia [None]
  - Muscle spasms [None]
  - Suicidal ideation [None]
  - Confusional state [None]
  - Ear pain [None]
